FAERS Safety Report 8835567 (Version 3)
Quarter: 2012Q4

REPORT INFORMATION
  Report Type: Report from Study
  Country: CA (occurrence: CA)
  Receive Date: 20121011
  Receipt Date: 20121205
  Transmission Date: 20130627
  Serious: Yes (Other)
  Sender: FDA-Public Use
  Company Number: CA-ROCHE-1123920

PATIENT
  Sex: Female
  Weight: 111.68 kg

DRUGS (16)
  1. TOCILIZUMAB [Suspect]
     Indication: RHEUMATOID ARTHRITIS
     Route: 042
     Dates: start: 20120611
  2. GLYBURIDE [Concomitant]
  3. LIPITOR [Concomitant]
  4. PLAQUENIL [Concomitant]
  5. SYNTHROID [Concomitant]
  6. SULFASALAZINE [Concomitant]
  7. ADALAT [Concomitant]
  8. NEXIUM [Concomitant]
  9. COVERSYL PLUS (CANADA) [Concomitant]
  10. ACETYLSALICYLIC ACID [Concomitant]
  11. FERROUS GLUCONATE [Concomitant]
  12. VENTOLIN [Concomitant]
  13. FLOVENT [Concomitant]
  14. MAGNESIUM [Concomitant]
  15. VITAMIN D [Concomitant]
  16. DIOVAN [Concomitant]

REACTIONS (8)
  - Arthralgia [Recovering/Resolving]
  - Pain in extremity [Unknown]
  - Pain in extremity [Recovered/Resolved]
  - Pulmonary hypertension [Unknown]
  - Contusion [Not Recovered/Not Resolved]
  - Device related infection [Not Recovered/Not Resolved]
  - Stomatitis [Not Recovered/Not Resolved]
  - Middle ear effusion [Not Recovered/Not Resolved]
